FAERS Safety Report 13124860 (Version 1)
Quarter: 2017Q1

REPORT INFORMATION
  Report Type: Spontaneous
  Country: US (occurrence: US)
  Receive Date: 20170118
  Receipt Date: 20170118
  Transmission Date: 20170428
  Serious: No
  Sender: FDA-Public Use
  Company Number: US-BAYER-2017-009567

PATIENT
  Sex: Female

DRUGS (3)
  1. MIRALAX [Suspect]
     Active Substance: POLYETHYLENE GLYCOL 3350
     Indication: GASTROINTESTINAL DISORDER
     Dosage: 1 DF, UNK
     Route: 048
  2. CHEMOTHERAPEUTICS NOS [Concomitant]
     Active Substance: UNSPECIFIED INGREDIENT
     Dosage: UNK
  3. OXYCODONE [Concomitant]
     Active Substance: OXYCODONE
     Dosage: UNK

REACTIONS (1)
  - Product use issue [Unknown]
